FAERS Safety Report 18518862 (Version 12)
Quarter: 2022Q4

REPORT INFORMATION
  Report Type: Other
  Country: CA (occurrence: CA)
  Receive Date: 20201119
  Receipt Date: 20221004
  Transmission Date: 20230112
  Serious: Yes (Life-Threatening, Hospitalization, Other)
  Sender: FDA-Public Use
  Company Number: CA-ROCHE-2704333

PATIENT
  Age: 57 Year
  Sex: Female
  Weight: 82 kg

DRUGS (55)
  1. XOLAIR [Suspect]
     Active Substance: OMALIZUMAB
     Indication: Asthma
     Route: 058
     Dates: start: 20130529
  2. XOLAIR [Suspect]
     Active Substance: OMALIZUMAB
     Route: 058
     Dates: start: 20130820
  3. XOLAIR [Suspect]
     Active Substance: OMALIZUMAB
     Route: 058
     Dates: start: 20140204
  4. XOLAIR [Suspect]
     Active Substance: OMALIZUMAB
     Route: 058
     Dates: start: 20140303
  5. XOLAIR [Suspect]
     Active Substance: OMALIZUMAB
     Dosage: UNK
     Route: 058
     Dates: start: 20140401
  6. XOLAIR [Suspect]
     Active Substance: OMALIZUMAB
     Route: 058
     Dates: start: 20140528
  7. XOLAIR [Suspect]
     Active Substance: OMALIZUMAB
     Dosage: UNK
     Route: 058
     Dates: start: 20140625
  8. XOLAIR [Suspect]
     Active Substance: OMALIZUMAB
     Route: 058
     Dates: start: 20140723
  9. XOLAIR [Suspect]
     Active Substance: OMALIZUMAB
     Route: 058
     Dates: start: 20140820
  10. XOLAIR [Suspect]
     Active Substance: OMALIZUMAB
     Route: 058
     Dates: start: 20140918
  11. XOLAIR [Suspect]
     Active Substance: OMALIZUMAB
     Dosage: UNK
     Route: 058
     Dates: start: 20141125
  12. XOLAIR [Suspect]
     Active Substance: OMALIZUMAB
     Dosage: UNK
     Route: 058
     Dates: start: 20150121
  13. XOLAIR [Suspect]
     Active Substance: OMALIZUMAB
     Route: 058
     Dates: start: 20150319
  14. XOLAIR [Suspect]
     Active Substance: OMALIZUMAB
     Route: 058
     Dates: start: 20150401
  15. XOLAIR [Suspect]
     Active Substance: OMALIZUMAB
     Route: 058
     Dates: start: 20150420
  16. XOLAIR [Suspect]
     Active Substance: OMALIZUMAB
     Dosage: UNK
     Route: 058
     Dates: start: 20150506
  17. XOLAIR [Suspect]
     Active Substance: OMALIZUMAB
     Route: 058
     Dates: start: 20150520
  18. XOLAIR [Suspect]
     Active Substance: OMALIZUMAB
     Dosage: UNK
     Route: 058
     Dates: start: 20150603
  19. XOLAIR [Suspect]
     Active Substance: OMALIZUMAB
     Route: 058
     Dates: start: 20150617
  20. XOLAIR [Suspect]
     Active Substance: OMALIZUMAB
     Dosage: UNK
     Route: 058
     Dates: start: 20150629
  21. XOLAIR [Suspect]
     Active Substance: OMALIZUMAB
     Route: 058
     Dates: start: 20150715
  22. XOLAIR [Suspect]
     Active Substance: OMALIZUMAB
     Dosage: UNK
     Route: 058
     Dates: start: 20150826
  23. XOLAIR [Suspect]
     Active Substance: OMALIZUMAB
     Dosage: UNK
     Route: 058
     Dates: start: 20150909
  24. XOLAIR [Suspect]
     Active Substance: OMALIZUMAB
     Route: 058
     Dates: start: 20150923
  25. XOLAIR [Suspect]
     Active Substance: OMALIZUMAB
     Route: 058
     Dates: start: 20151021
  26. XOLAIR [Suspect]
     Active Substance: OMALIZUMAB
     Route: 058
     Dates: start: 20160209
  27. XOLAIR [Suspect]
     Active Substance: OMALIZUMAB
     Route: 058
     Dates: start: 20160223
  28. XOLAIR [Suspect]
     Active Substance: OMALIZUMAB
     Route: 058
     Dates: start: 20160310
  29. XOLAIR [Suspect]
     Active Substance: OMALIZUMAB
     Route: 058
     Dates: start: 20160323
  30. XOLAIR [Suspect]
     Active Substance: OMALIZUMAB
     Route: 058
     Dates: start: 20160406
  31. XOLAIR [Suspect]
     Active Substance: OMALIZUMAB
     Route: 058
     Dates: start: 20160630
  32. XOLAIR [Suspect]
     Active Substance: OMALIZUMAB
     Route: 058
     Dates: start: 20161006
  33. XOLAIR [Suspect]
     Active Substance: OMALIZUMAB
     Route: 058
     Dates: start: 20161118
  34. XOLAIR [Suspect]
     Active Substance: OMALIZUMAB
     Route: 058
     Dates: start: 20161201
  35. XOLAIR [Suspect]
     Active Substance: OMALIZUMAB
     Route: 058
     Dates: start: 20161222
  36. XOLAIR [Suspect]
     Active Substance: OMALIZUMAB
     Route: 058
     Dates: start: 20170117
  37. XOLAIR [Suspect]
     Active Substance: OMALIZUMAB
     Route: 058
     Dates: start: 20170131
  38. XOLAIR [Suspect]
     Active Substance: OMALIZUMAB
     Route: 058
     Dates: start: 20170216
  39. XOLAIR [Suspect]
     Active Substance: OMALIZUMAB
     Dosage: UNK
     Route: 058
     Dates: start: 20170328
  40. XOLAIR [Suspect]
     Active Substance: OMALIZUMAB
     Dosage: UNK
     Route: 058
     Dates: start: 20170524
  41. XOLAIR [Suspect]
     Active Substance: OMALIZUMAB
     Dosage: UNK
     Route: 058
     Dates: start: 20170718
  42. XOLAIR [Suspect]
     Active Substance: OMALIZUMAB
     Route: 058
     Dates: start: 20170927
  43. XOLAIR [Suspect]
     Active Substance: OMALIZUMAB
     Route: 058
     Dates: start: 20180228
  44. XOLAIR [Suspect]
     Active Substance: OMALIZUMAB
     Route: 058
     Dates: start: 20180523
  45. XOLAIR [Suspect]
     Active Substance: OMALIZUMAB
     Route: 058
     Dates: start: 20180606
  46. XOLAIR [Suspect]
     Active Substance: OMALIZUMAB
     Route: 058
     Dates: start: 20190130
  47. XOLAIR [Suspect]
     Active Substance: OMALIZUMAB
     Route: 058
     Dates: start: 20190130
  48. XOLAIR [Suspect]
     Active Substance: OMALIZUMAB
     Route: 058
     Dates: start: 20200116
  49. XOLAIR [Suspect]
     Active Substance: OMALIZUMAB
     Route: 058
     Dates: start: 20210422
  50. XOLAIR [Suspect]
     Active Substance: OMALIZUMAB
     Route: 058
  51. XOLAIR [Suspect]
     Active Substance: OMALIZUMAB
     Route: 058
  52. CODEINE PHOSPHATE [Suspect]
     Active Substance: CODEINE PHOSPHATE
     Indication: Product used for unknown indication
     Route: 065
  53. MOXIFLOXACIN [Suspect]
     Active Substance: MOXIFLOXACIN
     Indication: Product used for unknown indication
     Route: 065
  54. CLONIDINE [Concomitant]
     Active Substance: CLONIDINE
     Indication: Hot flush
     Dosage: 2 DF, QD
     Route: 065
     Dates: start: 2005
  55. CLONIDINE [Concomitant]
     Active Substance: CLONIDINE
     Dosage: 0.5 DF, QD
     Route: 065
     Dates: start: 2005

REACTIONS (84)
  - Oropharyngeal pain [Unknown]
  - Pulmonary embolism [Unknown]
  - Chest pain [Unknown]
  - Nausea [Unknown]
  - Pneumonia fungal [Recovered/Resolved]
  - Pulmonary mass [Unknown]
  - Aspergillus infection [Unknown]
  - Concomitant disease progression [Unknown]
  - Respiratory moniliasis [Unknown]
  - Wheezing [Not Recovered/Not Resolved]
  - Respiratory distress [Unknown]
  - Lower respiratory tract infection [Recovering/Resolving]
  - Bronchitis [Unknown]
  - Rheumatoid arthritis [Unknown]
  - Hypersensitivity [Unknown]
  - Paraesthesia oral [Unknown]
  - Pharyngeal swelling [Unknown]
  - Cough [Not Recovered/Not Resolved]
  - Pharyngeal erythema [Unknown]
  - Throat irritation [Recovering/Resolving]
  - Gastrointestinal haemorrhage [Not Recovered/Not Resolved]
  - Hypoventilation [Unknown]
  - Pneumonia [Recovering/Resolving]
  - Pneumonia [Recovered/Resolved]
  - Bronchopulmonary aspergillosis allergic [Unknown]
  - Hypothyroidism [Unknown]
  - Fatigue [Unknown]
  - Diarrhoea haemorrhagic [Unknown]
  - Hyperhidrosis [Recovered/Resolved]
  - Diarrhoea [Unknown]
  - Pruritus [Recovered/Resolved]
  - Urticaria [Recovered/Resolved]
  - Ear infection [Unknown]
  - Malaise [Unknown]
  - Cystitis [Unknown]
  - Influenza [Recovered/Resolved]
  - Lung disorder [Unknown]
  - Breath sounds abnormal [Unknown]
  - Ear pain [Unknown]
  - Lymphadenopathy [Unknown]
  - Pulmonary function test abnormal [Unknown]
  - Productive cough [Unknown]
  - Hepatic enzyme increased [Unknown]
  - Sputum discoloured [Unknown]
  - Red blood cell count increased [Unknown]
  - Tympanic membrane perforation [Unknown]
  - Hypotension [Unknown]
  - Infection [Unknown]
  - Blood pressure increased [Unknown]
  - Oxygen saturation decreased [Recovering/Resolving]
  - Sneezing [Unknown]
  - Pulmonary pain [Unknown]
  - Viral infection [Recovered/Resolved]
  - Pulmonary function test decreased [Unknown]
  - Pyrexia [Recovering/Resolving]
  - Rales [Unknown]
  - Dyspnoea [Not Recovered/Not Resolved]
  - Migraine [Recovered/Resolved]
  - Pneumonitis [Unknown]
  - Temperature intolerance [Unknown]
  - Feeling abnormal [Unknown]
  - Sensitivity to weather change [Unknown]
  - Seasonal allergy [Unknown]
  - Forced expiratory volume decreased [Unknown]
  - Weight decreased [Unknown]
  - Allergic sinusitis [Unknown]
  - Bronchospasm [Unknown]
  - Middle insomnia [Unknown]
  - Influenza [Recovered/Resolved]
  - Asthma [Unknown]
  - Nasal congestion [Unknown]
  - Nasopharyngitis [Recovered/Resolved]
  - Urinary tract infection [Unknown]
  - Somnolence [Unknown]
  - Body temperature decreased [Unknown]
  - Sinusitis [Recovering/Resolving]
  - Headache [Unknown]
  - Injection site bruising [Unknown]
  - Influenza like illness [Recovered/Resolved]
  - Chills [Recovered/Resolved]
  - Pain [Recovered/Resolved]
  - Arthralgia [Unknown]
  - Migraine [Unknown]
  - Wrong technique in product usage process [Unknown]

NARRATIVE: CASE EVENT DATE: 20130529
